FAERS Safety Report 4825865-0 (Version None)
Quarter: 2005Q4

REPORT INFORMATION
  Report Type: 
  Country: None (occurrence: None)
  Receive Date: 20051109
  Receipt Date: 20051028
  Transmission Date: 20060501
  Serious: Yes (Other)
  Sender: FDA-Public Use
  Company Number: 170471

PATIENT
  Age: 57 Year
  Sex: Female
  Weight: 49.4421 kg

DRUGS (2)
  1. AVONEX [Suspect]
     Indication: MULTIPLE SCLEROSIS
     Dosage: 30 UG; QW; IM
     Route: 030
     Dates: start: 20030307, end: 20050601
  2. PREMPRO [Concomitant]

REACTIONS (1)
  - BIOPSY LYMPH GLAND [None]
